FAERS Safety Report 16324511 (Version 5)
Quarter: 2020Q1

REPORT INFORMATION
  Report Type: Report from Study
  Country: GB (occurrence: GB)
  Receive Date: 20190517
  Receipt Date: 20200313
  Transmission Date: 20200409
  Serious: Yes (Hospitalization, Disabling, Other)
  Sender: FDA-Public Use
  Company Number: GB-BAUSCH-BL-2019-014188

PATIENT
  Age: 65 Year
  Sex: Female
  Weight: 59.4 kg

DRUGS (22)
  1. TRIENTINE [Suspect]
     Active Substance: TRIENTINE
     Indication: HEPATO-LENTICULAR DEGENERATION
     Route: 048
     Dates: end: 20190402
  2. RAMIPRIL. [Concomitant]
     Active Substance: RAMIPRIL
     Indication: HYPERTENSION
     Route: 048
     Dates: end: 20181231
  3. ASPIRIN. [Concomitant]
     Active Substance: ASPIRIN
     Indication: MYOCARDIAL ISCHAEMIA
     Route: 048
     Dates: start: 2012
  4. ERELZI [Suspect]
     Active Substance: ETANERCEPT-SZZS
     Route: 058
     Dates: start: 20190430, end: 20191030
  5. ERELZI [Suspect]
     Active Substance: ETANERCEPT-SZZS
     Route: 065
     Dates: start: 20191105
  6. RANITIDINE. [Concomitant]
     Active Substance: RANITIDINE
     Indication: OESOPHAGITIS ULCERATIVE
     Route: 048
     Dates: start: 20181213
  7. FOSTAIR [Concomitant]
     Active Substance: BECLOMETHASONE\FORMOTEROL
     Indication: CHRONIC OBSTRUCTIVE PULMONARY DISEASE
     Route: 050
  8. PREDNISOLONE. [Concomitant]
     Active Substance: PREDNISOLONE
     Indication: CHRONIC OBSTRUCTIVE PULMONARY DISEASE
     Route: 048
  9. ELANTAN [Concomitant]
     Active Substance: ISOSORBIDE MONONITRATE
     Indication: MYOCARDIAL ISCHAEMIA
     Route: 048
     Dates: end: 20190402
  10. ENBREL [Concomitant]
     Active Substance: ETANERCEPT
     Indication: RHEUMATOID ARTHRITIS
     Route: 058
     Dates: start: 2010, end: 201805
  11. PARACETAMOL [Concomitant]
     Active Substance: ACETAMINOPHEN
     Indication: RHEUMATOID ARTHRITIS
     Route: 048
  12. VENTOLIN [Concomitant]
     Active Substance: ALBUTEROL SULFATE
     Indication: CHRONIC OBSTRUCTIVE PULMONARY DISEASE
     Route: 050
     Dates: start: 20150519
  13. AMITRIPTYLINE [Concomitant]
     Active Substance: AMITRIPTYLINE
     Indication: MANIA
     Route: 048
  14. PREDNISOLONE. [Concomitant]
     Active Substance: PREDNISOLONE
     Route: 048
     Dates: start: 20191023, end: 20191027
  15. BISOPROLOL [Concomitant]
     Active Substance: BISOPROLOL
     Indication: MYOCARDIAL ISCHAEMIA
     Route: 048
     Dates: start: 2012
  16. CALCHEW [Concomitant]
     Indication: OSTEOARTHRITIS
     Route: 048
  17. ZOLEDRONIC ACID. [Concomitant]
     Active Substance: ZOLEDRONIC ACID
     Indication: OSTEOPOROSIS
     Route: 042
  18. AMILORIDE [Concomitant]
     Active Substance: AMILORIDE
     Indication: HYPERTENSION
     Route: 048
     Dates: start: 20191105
  19. LANSOPRAZOLE. [Suspect]
     Active Substance: LANSOPRAZOLE
     Indication: OESOPHAGITIS ULCERATIVE
     Route: 048
  20. ERELZI [Suspect]
     Active Substance: ETANERCEPT-SZZS
     Indication: RHEUMATOID ARTHRITIS
     Route: 058
     Dates: start: 201805, end: 20190423
  21. RANITIDINE. [Concomitant]
     Active Substance: RANITIDINE
     Indication: CHRONIC OBSTRUCTIVE PULMONARY DISEASE
     Route: 065
     Dates: start: 20191023, end: 20191027
  22. ATORVASTATIN [Concomitant]
     Active Substance: ATORVASTATIN
     Indication: PROPHYLAXIS
     Route: 048

REACTIONS (15)
  - Gastric ulcer [Not Recovered/Not Resolved]
  - Hypomagnesaemia [Recovered/Resolved]
  - Fall [Recovered/Resolved]
  - Abdominal pain [Not Recovered/Not Resolved]
  - Hepatic steatosis [Not Recovered/Not Resolved]
  - Acute kidney injury [Recovered/Resolved]
  - Hypomagnesaemia [Not Recovered/Not Resolved]
  - Confusional state [Unknown]
  - Diarrhoea [Unknown]
  - Hypomagnesaemia [Recovered/Resolved]
  - Lower respiratory tract infection [Recovered/Resolved]
  - Pain [Not Recovered/Not Resolved]
  - Constipation [Not Recovered/Not Resolved]
  - Chronic obstructive pulmonary disease [Recovered/Resolved]
  - Corneal abrasion [Recovered/Resolved]

NARRATIVE: CASE EVENT DATE: 20180606
